FAERS Safety Report 7450331-6 (Version None)
Quarter: 2011Q2

REPORT INFORMATION
  Report Type: 
  Country: None (occurrence: None)
  Receive Date: 20110429
  Receipt Date: 20110429
  Transmission Date: 20111010
  Serious: Yes (Life-Threatening)
  Sender: FDA-Public Use
  Company Number: None

PATIENT
  Age: 11 Year
  Sex: Female
  Weight: 63.5036 kg

DRUGS (2)
  1. GAMMAGARD S/D [Suspect]
     Indication: IMMUNE SYSTEM DISORDER
     Dosage: 25 GRAMS EVERY 4 WEEKS IV DRIP
     Route: 041
     Dates: start: 20110427, end: 20110427
  2. GAMMAGARD S/D [Suspect]

REACTIONS (6)
  - FACE OEDEMA [None]
  - RASH [None]
  - BACK PAIN [None]
  - LOCAL SWELLING [None]
  - SWOLLEN TONGUE [None]
  - INFUSION RELATED REACTION [None]
